FAERS Safety Report 10064405 (Version 1)
Quarter: 2014Q2

REPORT INFORMATION
  Report Type: Spontaneous
  Country: US (occurrence: None)
  Receive Date: 20140407
  Receipt Date: 20140407
  Transmission Date: 20141212
  Serious: Yes (Other)
  Sender: FDA-Public Use
  Company Number: None

PATIENT
  Age: 24 Year
  Sex: Female

DRUGS (1)
  1. NEOMYCIN, POLYMIXIN, HYDROCORTISONE [Suspect]
     Indication: CONJUNCTIVITIS
     Dosage: BID-QID, AURICULAR (OTIC)?
     Dates: start: 20140326, end: 20140326

REACTIONS (3)
  - Drug dispensing error [None]
  - Incorrect route of drug administration [None]
  - Instillation site pain [None]
